FAERS Safety Report 17788316 (Version 2)
Quarter: 2022Q3

REPORT INFORMATION
  Report Type: Spontaneous
  Country: FR (occurrence: FR)
  Receive Date: 20200514
  Receipt Date: 20220915
  Transmission Date: 20221027
  Serious: Yes (Other)
  Sender: FDA-Public Use
  Company Number: FR-ETHYPHARM-201900954

PATIENT
  Sex: Female

DRUGS (6)
  1. TRAMADOL HYDROCHLORIDE [Suspect]
     Active Substance: TRAMADOL HYDROCHLORIDE
     Indication: Product used for unknown indication
     Route: 065
  2. SKENAN [Suspect]
     Active Substance: MORPHINE SULFATE
     Indication: Substance use
     Route: 045
  3. SKENAN [Suspect]
     Active Substance: MORPHINE SULFATE
     Route: 045
  4. CODEINE [Suspect]
     Active Substance: CODEINE
     Indication: Product used for unknown indication
     Route: 065
  5. CODEINE [Suspect]
     Active Substance: CODEINE
     Route: 065
  6. MORPHINE [Suspect]
     Active Substance: MORPHINE
     Indication: Product used for unknown indication
     Route: 045

REACTIONS (16)
  - Rhinorrhoea [Unknown]
  - Tension [Unknown]
  - Feeling of body temperature change [Unknown]
  - Drug abuse [Unknown]
  - Diarrhoea [Unknown]
  - Hyperhidrosis [Unknown]
  - Feeling hot [Unknown]
  - Yawning [Unknown]
  - Therapeutic response unexpected [Unknown]
  - Drug tolerance increased [Unknown]
  - Nausea [Unknown]
  - Nightmare [Unknown]
  - Somnolence [Unknown]
  - Euphoric mood [Unknown]
  - Drug dependence [Unknown]
  - Wrong technique in product usage process [Unknown]
